FAERS Safety Report 14310940 (Version 1)
Quarter: 2017Q4

REPORT INFORMATION
  Report Type: Spontaneous
  Country: US (occurrence: US)
  Receive Date: 20171221
  Receipt Date: 20171221
  Transmission Date: 20180321
  Serious: No
  Sender: FDA-Public Use
  Company Number: US-BRISTOL-MYERS SQUIBB COMPANY-BMS-2017-114248

PATIENT
  Sex: Male
  Weight: 74.3 kg

DRUGS (2)
  1. ELIQUIS [Suspect]
     Active Substance: APIXABAN
     Indication: TRANSIENT ISCHAEMIC ATTACK
     Dosage: 5 MG, BID
     Route: 048
     Dates: start: 2017
  2. BENICAR [Concomitant]
     Active Substance: OLMESARTAN MEDOXOMIL
     Indication: HYPERTENSION
     Route: 065

REACTIONS (2)
  - Dizziness [Unknown]
  - Fatigue [Unknown]
